FAERS Safety Report 25932993 (Version 1)
Quarter: 2025Q4

REPORT INFORMATION
  Report Type: Spontaneous
  Country: GB (occurrence: GB)
  Receive Date: 20251017
  Receipt Date: 20251017
  Transmission Date: 20260118
  Serious: Yes (Other)
  Sender: TEVA
  Company Number: GB-TEVA-VS-3382967

PATIENT
  Age: 42 Year
  Sex: Male

DRUGS (1)
  1. METHYLPHENIDATE HYDROCHLORIDE [Suspect]
     Active Substance: METHYLPHENIDATE HYDROCHLORIDE
     Indication: Product used for unknown indication
     Dosage: ONCE IN MORNING
     Route: 065

REACTIONS (4)
  - Cognitive disorder [Recovered/Resolved]
  - Medication error [Unknown]
  - Dry mouth [Recovered/Resolved]
  - Palpitations [Recovered/Resolved]
